FAERS Safety Report 8476171-7 (Version None)
Quarter: 2012Q2

REPORT INFORMATION
  Report Type: 
  Country: None (occurrence: None)
  Receive Date: 20120628
  Receipt Date: 20120619
  Transmission Date: 20120825
  Serious: Yes (Hospitalization)
  Sender: FDA-Public Use
  Company Number: US-ELI_LILLY_AND_COMPANY-US201201002194

PATIENT
  Sex: Female

DRUGS (2)
  1. FORTEO [Suspect]
     Indication: KYPHOSIS
     Dosage: 20 UG, UNK
     Route: 065
  2. FORTEO [Suspect]
     Dosage: 20 UG, UNK
     Dates: start: 20111101

REACTIONS (10)
  - BALANCE DISORDER [None]
  - HYPOAESTHESIA [None]
  - PAIN [None]
  - SPINAL FUSION SURGERY [None]
  - DIZZINESS [None]
  - RHINORRHOEA [None]
  - HOT FLUSH [None]
  - WEIGHT DECREASED [None]
  - DIARRHOEA [None]
  - VERTIGO [None]
